FAERS Safety Report 6468458-4 (Version None)
Quarter: 2009Q4

REPORT INFORMATION
  Report Type: 
  Country: None (occurrence: None)
  Receive Date: 20091202
  Receipt Date: 20091202
  Transmission Date: 20100525
  Serious: Yes (Other)
  Sender: FDA-Public Use
  Company Number: None

PATIENT
  Age: 93 Year
  Sex: Female

DRUGS (5)
  1. ULTRAM [Suspect]
     Indication: PAIN
     Dosage: 50MG PO
     Route: 048
     Dates: start: 20091012
  2. ULTRAM [Suspect]
     Indication: PAIN
     Dosage: 50MG PO
     Route: 048
     Dates: start: 20091013
  3. ULTRAM [Suspect]
     Indication: PAIN
     Dosage: 50MG PO
     Route: 048
     Dates: start: 20091014
  4. ULTRAM [Suspect]
     Indication: PAIN
     Dosage: 50MG PO
     Route: 048
     Dates: start: 20091015
  5. ULTRAM [Suspect]
     Indication: PAIN
     Dosage: 50MG PO
     Route: 048
     Dates: start: 20091016

REACTIONS (3)
  - CONFUSIONAL STATE [None]
  - SCREAMING [None]
  - TREMOR [None]
